FAERS Safety Report 21595396 (Version 1)
Quarter: 2022Q4

REPORT INFORMATION
  Report Type: Spontaneous
  Country: US (occurrence: US)
  Receive Date: 20221115
  Receipt Date: 20221115
  Transmission Date: 20230113
  Serious: No
  Sender: FDA-Public Use
  Company Number: US-AMNEAL PHARMACEUTICALS-2021-AMRX-04832

PATIENT
  Age: 17 Year
  Sex: Female

DRUGS (3)
  1. ISOTRETINOIN [Suspect]
     Active Substance: ISOTRETINOIN
     Indication: Acne
     Dosage: 1 CAPSULES, DAILY
     Route: 048
     Dates: start: 202110, end: 20211031
  2. ISOTRETINOIN [Suspect]
     Active Substance: ISOTRETINOIN
     Indication: Scar
  3. SUNSCREEN [Concomitant]
     Active Substance: HOMOSALATE\OCTINOXATE\OCTISALATE\OXYBENZONE\TITANIUM DIOXIDE
     Indication: Product used for unknown indication
     Dosage: UNK
     Route: 065

REACTIONS (2)
  - Alopecia [Unknown]
  - Anxiety [Unknown]

NARRATIVE: CASE EVENT DATE: 20211001
